FAERS Safety Report 10180976 (Version 1)
Quarter: 2014Q2

REPORT INFORMATION
  Report Type: Spontaneous
  Country: CR (occurrence: CR)
  Receive Date: 20140519
  Receipt Date: 20140519
  Transmission Date: 20141212
  Serious: Yes (Death, Hospitalization)
  Sender: FDA-Public Use
  Company Number: CR-PFIZER INC-2014134916

PATIENT
  Age: 50 Year
  Sex: Male

DRUGS (1)
  1. PANTECTA [Suspect]
     Indication: GASTRITIS
     Dosage: 20 MG, QD
     Route: 048
     Dates: start: 201403, end: 201403

REACTIONS (2)
  - Drug-induced liver injury [Fatal]
  - Hepatitis acute [Fatal]
